FAERS Safety Report 17511455 (Version 1)
Quarter: 2020Q1

REPORT INFORMATION
  Report Type: Spontaneous
  Country: DE (occurrence: DE)
  Receive Date: 20200306
  Receipt Date: 20200306
  Transmission Date: 20200409
  Serious: Yes (Other)
  Sender: FDA-Public Use
  Company Number: DE-PFIZER INC-2020099300

PATIENT
  Age: 61 Year
  Sex: Female

DRUGS (13)
  1. MOVIPREP [Concomitant]
     Active Substance: ASCORBIC ACID\POLYETHYLENE GLYCOL 3350\POTASSIUM CHLORIDE\SODIUM ASCORBATE\SODIUM CHLORIDE\SODIUM SULFATE
     Route: 065
  2. TIANEURAX [Concomitant]
     Active Substance: TIANEPTINE SODIUM
     Route: 065
  3. CYCLOPHOSPHAMID [Suspect]
     Active Substance: CYCLOPHOSPHAMIDE
     Dosage: 4 TIMES
     Dates: start: 20180711, end: 20190107
  4. ELONTRIL [Concomitant]
     Active Substance: BUPROPION HYDROCHLORIDE
     Route: 065
  5. MILNANEURAX [Concomitant]
     Active Substance: MILNACIPRAN HYDROCHLORIDE
     Route: 065
  6. BRINTELLIX [Concomitant]
     Active Substance: VORTIOXETINE HYDROBROMIDE
     Route: 065
  7. TAXOTERE [Suspect]
     Active Substance: DOCETAXEL
     Indication: BREAST CANCER FEMALE
     Dosage: 4 TIMES
     Dates: start: 20180711, end: 20190107
  8. HERCEPTIN [Suspect]
     Active Substance: TRASTUZUMAB
     Indication: BREAST CANCER FEMALE
     Dosage: 4 TIMES
     Dates: start: 20180711, end: 20190107
  9. SERTRALINE NEURAX [Concomitant]
     Route: 065
  10. EPIRUBICIN HCL [Suspect]
     Active Substance: EPIRUBICIN HYDROCHLORIDE
     Dosage: 4 TIMES
     Dates: start: 20180711, end: 20190107
  11. CEFPODOXIME [Concomitant]
     Active Substance: CEFPODOXIME
     Route: 065
  12. METOHEXAL SUCC [Concomitant]
     Active Substance: METOPROLOL SUCCINATE
     Route: 065
  13. PAROXETIN NEURAX [Concomitant]
     Route: 065

REACTIONS (3)
  - Aortic valve incompetence [Unknown]
  - Aortic dilatation [Unknown]
  - Ejection fraction decreased [Unknown]

NARRATIVE: CASE EVENT DATE: 20191001
